FAERS Safety Report 12817526 (Version 1)
Quarter: 2016Q4

REPORT INFORMATION
  Report Type: Report from Study
  Country: US (occurrence: US)
  Receive Date: 20161006
  Receipt Date: 20161006
  Transmission Date: 20170207
  Serious: Yes (Hospitalization, Other)
  Sender: FDA-Public Use
  Company Number: US-ROCHE-789486

PATIENT
  Age: 68 Year
  Sex: Female
  Weight: 73.9 kg

DRUGS (9)
  1. BEVACIZUMAB [Suspect]
     Active Substance: BEVACIZUMAB
     Indication: PAPILLARY SEROUS ENDOMETRIAL CARCINOMA
     Dosage: OVER 30-90 MINUTES ON DAY 1, TOTAL DOSE: 1222 MG, LAST DOSE PRIOR TO SAE: 10 MAY 2011.
     Route: 042
  2. IXABEPILONE [Suspect]
     Active Substance: IXABEPILONE
     Dosage: COURSE 4
     Route: 042
  3. CARBOPLATIN. [Suspect]
     Active Substance: CARBOPLATIN
     Indication: PAPILLARY SEROUS ENDOMETRIAL CARCINOMA
     Dosage: AUC 6, OVER 30 MIN. ON DAY 1 1 X 6 CYCLES, TOTAL DOSE: 629 MG, LAST DOSE ON 10/MAY/2011
     Route: 042
     Dates: start: 20110322
  4. IXABEPILONE [Suspect]
     Active Substance: IXABEPILONE
     Dosage: COURSE 3
     Route: 042
  5. BEVACIZUMAB [Suspect]
     Active Substance: BEVACIZUMAB
     Dosage: COURSE 2
     Route: 042
  6. IXABEPILONE [Suspect]
     Active Substance: IXABEPILONE
     Indication: PAPILLARY SEROUS ENDOMETRIAL CARCINOMA
     Dosage: OVER 1 HR ON DAY 1 X 6 CYCLES, TOTAL DOSE: 58.8 MG, LAST DOSE PRIOR TO SAE: 10 MAY 2011.
     Route: 042
  7. IXABEPILONE [Suspect]
     Active Substance: IXABEPILONE
     Dosage: COURSE 2
     Route: 042
  8. BEVACIZUMAB [Suspect]
     Active Substance: BEVACIZUMAB
     Dosage: COURSE 3
     Route: 042
  9. BEVACIZUMAB [Suspect]
     Active Substance: BEVACIZUMAB
     Dosage: COURSE 4
     Route: 042

REACTIONS (8)
  - Nausea [Unknown]
  - Embolism [Unknown]
  - Anaemia [Recovered/Resolved]
  - Neutrophil count decreased [Unknown]
  - Vomiting [Unknown]
  - Hypoalbuminaemia [Recovered/Resolved]
  - Platelet count decreased [Recovered/Resolved]
  - White blood cell count decreased [Unknown]

NARRATIVE: CASE EVENT DATE: 20110524
